FAERS Safety Report 7533294-4 (Version None)
Quarter: 2011Q2

REPORT INFORMATION
  Report Type: 
  Country: None (occurrence: None)
  Receive Date: 20110608
  Receipt Date: 20031202
  Transmission Date: 20111010
  Serious: Yes (Death, Hospitalization)
  Sender: FDA-Public Use
  Company Number: PHBS2002CA11282

PATIENT
  Sex: Male

DRUGS (1)
  1. CLOZAPINE [Suspect]
     Dosage: UNK
     Route: 048
     Dates: start: 20000801

REACTIONS (3)
  - CIRCULATORY COLLAPSE [None]
  - CHEST DISCOMFORT [None]
  - DEATH [None]
